FAERS Safety Report 17716852 (Version 2)
Quarter: 2020Q2

REPORT INFORMATION
  Report Type: Spontaneous
  Country: CN (occurrence: CN)
  Receive Date: 20200428
  Receipt Date: 20200624
  Transmission Date: 20200714
  Serious: Yes (Life-Threatening, Hospitalization, Other)
  Sender: FDA-Public Use
  Company Number: CN-BTG-202000085

PATIENT
  Age: 4 Year
  Sex: Female
  Weight: 13.6 kg

DRUGS (7)
  1. DIGIFAB [Suspect]
     Active Substance: OVINE DIGOXIN IMMUNE FAB
     Indication: TOXICITY TO VARIOUS AGENTS
     Dosage: 40MG IN NS 20ML, IVF 40ML/HR
     Route: 042
     Dates: start: 20180721, end: 20180721
  2. DIGOXIN. [Suspect]
     Active Substance: DIGOXIN
     Indication: ATRIAL SEPTAL DEFECT
     Dosage: 50 ?G TWICE DAILY
     Route: 048
  3. DIGIFAB [Suspect]
     Active Substance: OVINE DIGOXIN IMMUNE FAB
     Indication: TOXICITY TO VARIOUS AGENTS
     Dosage: 40MG IN NS 20ML, IVF 40ML/HR
     Route: 042
     Dates: start: 20180722, end: 20180722
  4. ATROPINE. [Concomitant]
     Active Substance: ATROPINE
     Indication: BRADYCARDIA
     Dosage: 0.3 MG IV ONCE
     Route: 042
     Dates: start: 20180722, end: 20180722
  5. ATROPINE. [Concomitant]
     Active Substance: ATROPINE
     Indication: BRADYCARDIA
     Dosage: 0.3 MG IV ONCE
     Route: 042
     Dates: start: 20180721, end: 20180721
  6. DOPAMINE [Concomitant]
     Active Substance: DOPAMINE HYDROCHLORIDE
     Indication: BRADYCARDIA
     Dosage: 1 MG/KG/MIN IVF
     Route: 042
     Dates: start: 20180722, end: 20180723
  7. DIGOXIN. [Suspect]
     Active Substance: DIGOXIN
     Indication: ATRIAL SEPTAL DEFECT
     Dosage: THE PATIENT ACCIDENTALLY INGESTED 30 ML (1.5 MG) OF DIGOXIN SYRUP.
     Route: 048

REACTIONS (4)
  - Atrioventricular block first degree [Recovered/Resolved]
  - Atrioventricular block second degree [Recovered/Resolved]
  - Drug monitoring procedure not performed [Unknown]
  - Bradycardia [Recovered/Resolved]

NARRATIVE: CASE EVENT DATE: 20180721
